FAERS Safety Report 4615110-3 (Version None)
Quarter: 2005Q1

REPORT INFORMATION
  Report Type: 
  Country: None (occurrence: None)
  Receive Date: 20050322
  Receipt Date: 20050318
  Transmission Date: 20050727
  Serious: Yes (Life-Threatening, Hospitalization)
  Sender: FDA-Public Use
  Company Number: PHEH2005US03341

PATIENT
  Sex: 0

DRUGS (1)
  1. STARLIX [Suspect]
     Dosage: 120 MG, TID
     Route: 048

REACTIONS (1)
  - HYPOGLYCAEMIC COMA [None]
